FAERS Safety Report 9363811 (Version 1)
Quarter: 2013Q2

REPORT INFORMATION
  Report Type: Spontaneous
  Country: US (occurrence: US)
  Receive Date: 20130624
  Receipt Date: 20130624
  Transmission Date: 20140414
  Serious: Yes (Other)
  Sender: FDA-Public Use
  Company Number: US-JNJFOC-20130609513

PATIENT
  Age: 53 Year
  Sex: Male
  Weight: 73.03 kg

DRUGS (5)
  1. REMICADE [Suspect]
     Indication: CROHN^S DISEASE
     Dosage: STARTED APPROXIMATELY 27 WEEKS PRIOR TO TIME OF REPORT
     Route: 042
  2. REMICADE [Suspect]
     Indication: COLITIS ULCERATIVE
     Dosage: STARTED APPROXIMATELY 27 WEEKS PRIOR TO TIME OF REPORT
     Route: 042
  3. IMURAN [Concomitant]
     Indication: CROHN^S DISEASE
     Route: 048
     Dates: start: 2012
  4. IMURAN [Concomitant]
     Indication: COLITIS ULCERATIVE
     Route: 048
     Dates: start: 2012
  5. CLONAZEPAM [Concomitant]
     Indication: SLEEP DISORDER THERAPY
     Dosage: AS NEEDED
     Route: 048

REACTIONS (4)
  - Lymphadenitis [Not Recovered/Not Resolved]
  - Communication disorder [Not Recovered/Not Resolved]
  - Lymph node pain [Not Recovered/Not Resolved]
  - Dysphagia [Not Recovered/Not Resolved]
